FAERS Safety Report 7568960-8 (Version None)
Quarter: 2011Q2

REPORT INFORMATION
  Report Type: 
  Country: None (occurrence: None)
  Receive Date: 20110623
  Receipt Date: 20110617
  Transmission Date: 20111010
  Serious: Yes (Hospitalization)
  Sender: FDA-Public Use
  Company Number: US-AMGEN-USACT2011031467

PATIENT
  Age: 35 Year
  Sex: Female

DRUGS (6)
  1. CYCLOPHOSPHAMIDE [Concomitant]
     Dosage: 60 MG/KG, UNK
     Route: 042
  2. PACLITAXEL [Concomitant]
     Dosage: 80 MG/M2, UNK
     Route: 042
  3. PEGFILGRASTIM [Suspect]
     Indication: BREAST CANCER
     Dosage: 6 MG, UNK
     Route: 058
  4. BEVACIZUMAB [Concomitant]
     Dosage: UNK
     Route: 042
     Dates: start: 20101216
  5. DOXORUBICIN HCL [Concomitant]
     Dosage: 60 MG/M2, UNK
     Route: 042
  6. FILGRASTIM [Suspect]
     Indication: BREAST CANCER
     Dosage: 5 A?G/KG, UNK
     Route: 058

REACTIONS (6)
  - LEFT VENTRICULAR FAILURE [None]
  - RESPIRATORY DISORDER [None]
  - TROPONIN INCREASED [None]
  - MUSCULOSKELETAL CHEST PAIN [None]
  - PALPITATIONS [None]
  - VISION BLURRED [None]
